FAERS Safety Report 5751166-2 (Version None)
Quarter: 2008Q2

REPORT INFORMATION
  Report Type: 
  Country: None (occurrence: None)
  Receive Date: 20080528
  Receipt Date: 20080315
  Transmission Date: 20081010
  Serious: Yes (Other)
  Sender: FDA-Public Use
  Company Number: GB-PFIZER INC-2008042075

PATIENT
  Age: 39 Year
  Sex: Female
  Weight: 52 kg

DRUGS (11)
  1. LITHIUM CARBONATE [Suspect]
     Indication: BIPOLAR DISORDER
     Dosage: DAILY DOSE:1.7GRAM
  2. THIOPENTONE [Suspect]
     Indication: ANAESTHESIA
     Dosage: DAILY DOSE:250MG
  3. OLANZAPINE [Concomitant]
     Dosage: DAILY DOSE:20MG
  4. CLONAZEPAM [Concomitant]
     Dosage: DAILY DOSE:.5MG
  5. FOLIC ACID [Concomitant]
     Dosage: DAILY DOSE:500MCG
  6. LACTULOSE [Concomitant]
  7. RANITIDINE [Concomitant]
     Dosage: DAILY DOSE:50MG
     Route: 042
  8. METOCLOPRAMIDE [Concomitant]
     Dosage: DAILY DOSE:10MG
     Route: 042
  9. SODIUM CITRATE [Concomitant]
     Dosage: DAILY DOSE:30ML
     Route: 048
  10. SUXAMETHONIUM [Concomitant]
     Dosage: DAILY DOSE:100MG
  11. ISOFLURANE [Concomitant]

REACTIONS (6)
  - AGITATION [None]
  - ANTIPSYCHOTIC DRUG LEVEL ABOVE THERAPEUTIC [None]
  - DELAYED RECOVERY FROM ANAESTHESIA [None]
  - DISORIENTATION [None]
  - POTENTIATING DRUG INTERACTION [None]
  - THERAPEUTIC AGENT TOXICITY [None]
